FAERS Safety Report 24377332 (Version 1)
Quarter: 2024Q3

REPORT INFORMATION
  Report Type: Spontaneous
  Country: US (occurrence: US)
  Receive Date: 20240930
  Receipt Date: 20240930
  Transmission Date: 20241016
  Serious: No
  Sender: ROCHE
  Company Number: US-ROCHE-10000094066

PATIENT
  Sex: Male

DRUGS (3)
  1. ESBRIET [Suspect]
     Active Substance: PIRFENIDONE
     Indication: Idiopathic pulmonary fibrosis
     Route: 048
     Dates: start: 20180829
  2. ESBRIET [Suspect]
     Active Substance: PIRFENIDONE
     Indication: Essential hypertension
  3. VALIUM [Concomitant]
     Active Substance: DIAZEPAM

REACTIONS (2)
  - Off label use [Unknown]
  - No adverse event [Unknown]
